FAERS Safety Report 20763822 (Version 6)
Quarter: 2025Q1

REPORT INFORMATION
  Report Type: Spontaneous
  Country: US (occurrence: US)
  Receive Date: 20220428
  Receipt Date: 20250227
  Transmission Date: 20250409
  Serious: Yes (Other)
  Sender: PFIZER
  Company Number: US-PFIZER INC-202200054124

PATIENT
  Age: 81 Year
  Sex: Male

DRUGS (2)
  1. XELJANZ XR [Suspect]
     Active Substance: TOFACITINIB CITRATE
     Indication: Cerebral infarction
     Dosage: 11 MG, DAILY
     Route: 048
  2. XELJANZ XR [Suspect]
     Active Substance: TOFACITINIB CITRATE
     Indication: Arthritis

REACTIONS (12)
  - Paralysis [Unknown]
  - Cerebrovascular accident [Unknown]
  - Arthralgia [Unknown]
  - Neuropathy peripheral [Unknown]
  - Off label use [Unknown]
  - Pain [Unknown]
  - Brain fog [Unknown]
  - Joint swelling [Unknown]
  - Fatigue [Unknown]
  - Dizziness [Unknown]
  - Musculoskeletal stiffness [Unknown]
  - Tenderness [Unknown]
